FAERS Safety Report 5930774-X (Version None)
Quarter: 2008Q4

REPORT INFORMATION
  Report Type: 
  Country: None (occurrence: None)
  Receive Date: 20081022
  Receipt Date: 20081007
  Transmission Date: 20090506
  Serious: Yes (Death)
  Sender: FDA-Public Use
  Company Number: 8037852

PATIENT
  Age: 53 Year
  Sex: Male

DRUGS (5)
  1. PREDNISOLONE [Suspect]
     Dates: start: 19990101
  2. CYCLOSPORINE [Suspect]
     Dates: start: 19990101
  3. MUROMANAB CD3 [Suspect]
  4. METHYLPREDNISOLONE 16MG TAB [Suspect]
     Dates: start: 20041201
  5. ATGAM [Suspect]
     Dates: start: 20041201

REACTIONS (7)
  - BRADYCARDIA [None]
  - CENTRAL NERVOUS SYSTEM NECROSIS [None]
  - FUNGAL ABSCESS CENTRAL NERVOUS SYSTEM [None]
  - HAEMATOCRIT DECREASED [None]
  - HYPOTENSION [None]
  - PSEUDALLESCHERIA INFECTION [None]
  - TRANSPLANT REJECTION [None]
